FAERS Safety Report 26151061 (Version 1)
Quarter: 2025Q4

REPORT INFORMATION
  Report Type: Spontaneous
  Country: US (occurrence: US)
  Receive Date: 20251212
  Receipt Date: 20251212
  Transmission Date: 20260117
  Serious: No
  Sender: ABBVIE
  Company Number: US-ABBVIE-6585980

PATIENT
  Age: 31 Year
  Sex: Male

DRUGS (2)
  1. RINVOQ [Suspect]
     Active Substance: UPADACITINIB
     Indication: Rheumatoid arthritis
     Route: 048
     Dates: start: 202510
  2. RINVOQ [Suspect]
     Active Substance: UPADACITINIB
     Indication: Rheumatoid arthritis
     Dosage: UNKNOWN
     Route: 048
     Dates: start: 2023, end: 202507

REACTIONS (5)
  - Intervertebral disc disorder [Unknown]
  - Crohn^s disease [Recovered/Resolved]
  - Frequent bowel movements [Recovered/Resolved]
  - Drug ineffective [Not Recovered/Not Resolved]
  - Ankylosing spondylitis [Unknown]

NARRATIVE: CASE EVENT DATE: 20250101
